FAERS Safety Report 16170647 (Version 1)
Quarter: 2019Q2

REPORT INFORMATION
  Report Type: Spontaneous
  Country: US (occurrence: US)
  Receive Date: 20190408
  Receipt Date: 20190408
  Transmission Date: 20190711
  Serious: No
  Sender: FDA-Public Use
  Company Number: US-GLAXOSMITHKLINE-US2019059619

PATIENT
  Age: 67 Year
  Sex: Female

DRUGS (1)
  1. DICLOFENAC SODIUM GEL [Suspect]
     Active Substance: DICLOFENAC SODIUM
     Indication: AUTOIMMUNE ARTHRITIS
     Dosage: ON BOTH KNEES, QID
     Route: 061
     Dates: start: 20180301, end: 20190401

REACTIONS (11)
  - Oral discomfort [Unknown]
  - Hypoacusis [Unknown]
  - Adverse drug reaction [Unknown]
  - Condition aggravated [Not Recovered/Not Resolved]
  - Product use in unapproved indication [Unknown]
  - Anaemia [Unknown]
  - Stomatitis [Not Recovered/Not Resolved]
  - Herpes zoster [Unknown]
  - Drug ineffective for unapproved indication [Unknown]
  - Bronchitis [Recovered/Resolved]
  - Ear pain [Unknown]

NARRATIVE: CASE EVENT DATE: 20180301
